FAERS Safety Report 9447973 (Version 1)
Quarter: 2013Q3

REPORT INFORMATION
  Report Type: Spontaneous
  Country: FR (occurrence: None)
  Receive Date: 20130806
  Receipt Date: 20130806
  Transmission Date: 20140515
  Serious: Yes (Life-Threatening)
  Sender: FDA-Public Use
  Company Number: 2013P1013768

PATIENT
  Sex: 0

DRUGS (1)
  1. DILTIAZEM [Suspect]
     Indication: ATRIAL FIBRILLATION

REACTIONS (2)
  - Sudden cardiac death [None]
  - Ventricular fibrillation [None]
